FAERS Safety Report 6096535-9 (Version None)
Quarter: 2009Q1

REPORT INFORMATION
  Report Type: 
  Country: None (occurrence: None)
  Receive Date: 20090227
  Receipt Date: 20090217
  Transmission Date: 20090719
  Serious: Yes (Other)
  Sender: FDA-Public Use
  Company Number: JP-SANOFI-SYNTHELABO-A01200815626

PATIENT
  Age: 52 Year
  Sex: Female

DRUGS (3)
  1. LEUCOVORIN CALCIUM [Concomitant]
     Route: 041
     Dates: start: 20060802, end: 20060831
  2. FLUOROURACIL [Concomitant]
     Route: 041
     Dates: start: 20060802, end: 20060831
  3. ELPLAT [Suspect]
     Indication: RECTAL CANCER STAGE I
     Route: 042
     Dates: start: 20060830, end: 20060830

REACTIONS (1)
  - BONE MARROW FAILURE [None]
